FAERS Safety Report 15833968 (Version 2)
Quarter: 2019Q1

REPORT INFORMATION
  Report Type: Spontaneous
  Country: US (occurrence: US)
  Receive Date: 20190116
  Receipt Date: 20190308
  Transmission Date: 20190417
  Serious: Yes (Hospitalization, Other)
  Sender: FDA-Public Use
  Company Number: US-ASTRAZENECA-2019SE04984

PATIENT
  Age: 74 Year
  Sex: Male
  Weight: 79.4 kg

DRUGS (6)
  1. SYMBICORT [Suspect]
     Active Substance: BUDESONIDE\FORMOTEROL FUMARATE DIHYDRATE
     Dosage: 160/ 4.5 MCG, 2 INHALATIONS, TWO TIMES A DAY AS REQUIRED
     Route: 055
     Dates: start: 20190104
  2. NORVASC [Concomitant]
     Active Substance: AMLODIPINE BESYLATE
     Indication: BLOOD PRESSURE MEASUREMENT
     Route: 048
  3. BUDESONIDE. [Suspect]
     Active Substance: BUDESONIDE
     Dosage: TWO TIMES A DAY
     Route: 055
  4. BROVANA [Concomitant]
     Active Substance: ARFORMOTEROL TARTRATE
  5. LOPRESSOR [Concomitant]
     Active Substance: METOPROLOL TARTRATE
     Indication: BLOOD PRESSURE MEASUREMENT
     Route: 048
  6. SYMBICORT [Suspect]
     Active Substance: BUDESONIDE\FORMOTEROL FUMARATE DIHYDRATE
     Dosage: MAYBE 80/ 4.5 MCG AND 160/ 4.5 MCG, AS REQUIRED
     Route: 055
     Dates: start: 2015

REACTIONS (13)
  - Wrong technique in product usage process [Unknown]
  - Chronic obstructive pulmonary disease [Unknown]
  - Product use in unapproved indication [Unknown]
  - Lung neoplasm malignant [Unknown]
  - Rheumatoid arthritis [Unknown]
  - Pneumonia [Unknown]
  - Off label use [Unknown]
  - Fall [Unknown]
  - Upper limb fracture [Unknown]
  - Rib fracture [Unknown]
  - Device malfunction [Unknown]
  - Influenza [Unknown]
  - Drug abuse [Unknown]

NARRATIVE: CASE EVENT DATE: 2016
